FAERS Safety Report 25911124 (Version 1)
Quarter: 2025Q4

REPORT INFORMATION
  Report Type: Report from Study
  Country: US (occurrence: US)
  Receive Date: 20251013
  Receipt Date: 20251013
  Transmission Date: 20260119
  Serious: Yes (Other)
  Sender: ABBVIE
  Company Number: US-ABBVIE-6498900

PATIENT
  Age: 45 Year

DRUGS (2)
  1. RISANKIZUMAB [Suspect]
     Active Substance: RISANKIZUMAB
     Indication: Crohn^s disease
     Route: 058
  2. COLESEVELAM [Concomitant]
     Active Substance: COLESEVELAM
     Indication: Bile acid malabsorption

REACTIONS (1)
  - Small intestinal resection [Unknown]

NARRATIVE: CASE EVENT DATE: 20250701
